FAERS Safety Report 18814011 (Version 2)
Quarter: 2021Q1

REPORT INFORMATION
  Report Type: Other
  Country: IL (occurrence: IL)
  Receive Date: 20210201
  Receipt Date: 20210205
  Transmission Date: 20210419
  Serious: Yes (Other)
  Sender: FDA-Public Use
  Company Number: IL-ROCHE-2755547

PATIENT
  Age: 64 Year
  Sex: Female

DRUGS (9)
  1. CIPRALEX [Concomitant]
     Active Substance: ESCITALOPRAM OXALATE
  2. AVONEX [Concomitant]
     Active Substance: INTERFERON BETA-1A
  3. FOSALAN [Concomitant]
     Active Substance: ALENDRONATE SODIUM
  4. TRITACE [Concomitant]
     Active Substance: RAMIPRIL
  5. FAMPYRA [Concomitant]
     Active Substance: DALFAMPRIDINE
  6. OCREVUS [Suspect]
     Active Substance: OCRELIZUMAB
     Indication: SECONDARY PROGRESSIVE MULTIPLE SCLEROSIS
     Dosage: FIRST TREATMENT
     Route: 042
     Dates: start: 20180711, end: 202007
  7. COPAXONE [Concomitant]
     Active Substance: GLATIRAMER ACETATE
  8. NEXIUM [Concomitant]
     Active Substance: ESOMEPRAZOLE MAGNESIUM
  9. BETISTINE [Concomitant]

REACTIONS (1)
  - Pneumonia [Recovered/Resolved]

NARRATIVE: CASE EVENT DATE: 202012
